FAERS Safety Report 20799935 (Version 1)
Quarter: 2022Q2

REPORT INFORMATION
  Report Type: Spontaneous
  Country: RO (occurrence: RO)
  Receive Date: 20220509
  Receipt Date: 20220509
  Transmission Date: 20220720
  Serious: Yes (Other)
  Sender: FDA-Public Use
  Company Number: RO-CELGENE-ROU-20210607902

PATIENT
  Age: 44 Year
  Sex: Female

DRUGS (4)
  1. AZACITIDINE [Suspect]
     Active Substance: AZACITIDINE
     Indication: Acute myeloid leukaemia recurrent
     Dosage: FREQUENCY TEXT: NOT PROVIDED
     Route: 042
  2. AZACITIDINE [Suspect]
     Active Substance: AZACITIDINE
     Indication: Acute myeloid leukaemia
  3. OLAPARIB [Suspect]
     Active Substance: OLAPARIB
     Indication: Acute myeloid leukaemia
     Dosage: UNK
     Route: 065
  4. OLAPARIB [Suspect]
     Active Substance: OLAPARIB
     Indication: Ovarian cancer

REACTIONS (4)
  - Off label use [Unknown]
  - Drug resistance [Unknown]
  - Leukocytosis [Unknown]
  - Blast cell count increased [Unknown]
